FAERS Safety Report 24991393 (Version 2)
Quarter: 2025Q1

REPORT INFORMATION
  Report Type: Spontaneous
  Country: CA (occurrence: CA)
  Receive Date: 20250220
  Receipt Date: 20250306
  Transmission Date: 20250409
  Serious: Yes (Other)
  Sender: CSL BEHRING
  Company Number: CA-BEH-2025195983

PATIENT
  Age: 56 Year
  Sex: Male

DRUGS (2)
  1. PRIVIGEN [Suspect]
     Active Substance: HUMAN IMMUNOGLOBULIN G
     Indication: Secondary immunodeficiency
     Route: 065
     Dates: start: 20250206, end: 20250206
  2. OXYGEN [Concomitant]
     Active Substance: OXYGEN

REACTIONS (12)
  - Anaphylactic reaction [Unknown]
  - Oxygen saturation decreased [Unknown]
  - Hypertension [Unknown]
  - Throat tightness [Unknown]
  - Dyspnoea [Unknown]
  - Dyspnoea [Unknown]
  - Tachycardia [Unknown]
  - Erythema [Unknown]
  - Anxiety [Unknown]
  - Speech disorder [Unknown]
  - Transfusion reaction [Unknown]
  - Abdominal discomfort [Unknown]

NARRATIVE: CASE EVENT DATE: 20250206
